FAERS Safety Report 21937160 (Version 1)
Quarter: 2023Q1

REPORT INFORMATION
  Report Type: Spontaneous
  Country: US (occurrence: None)
  Receive Date: 20230131
  Receipt Date: 20230131
  Transmission Date: 20230418
  Serious: No
  Sender: FDA-Public Use
  Company Number: None

PATIENT
  Age: 64 Year
  Sex: Male

DRUGS (1)
  1. NANDROLONE DECANOATE\TESTOSTERONE CYPIONATE\TESTOSTERONE ENANTHATE [Suspect]
     Active Substance: NANDROLONE DECANOATE\TESTOSTERONE CYPIONATE\TESTOSTERONE ENANTHATE
     Dosage: OTHER FREQUENCY : EVERY 3.5 DAYS;?
     Route: 058
     Dates: start: 20220620

REACTIONS (2)
  - Anger [None]
  - Product complaint [None]

NARRATIVE: CASE EVENT DATE: 20221227
